FAERS Safety Report 17398885 (Version 1)
Quarter: 2020Q1

REPORT INFORMATION
  Report Type: Spontaneous
  Country: US (occurrence: US)
  Receive Date: 20200210
  Receipt Date: 20200210
  Transmission Date: 20200409
  Serious: No
  Sender: FDA-Public Use
  Company Number: US-GE HEALTHCARE LIFE SCIENCES-2019CSU004375

PATIENT
  Age: 51 Year
  Sex: Female
  Weight: 73.47 kg

DRUGS (2)
  1. OMNIPAQUE [Suspect]
     Active Substance: IOHEXOL
     Indication: HAEMATURIA
  2. OMNIPAQUE [Suspect]
     Active Substance: IOHEXOL
     Indication: UROGRAM
     Dosage: 120 ML, SINGLE
     Route: 042
     Dates: start: 20190613, end: 20190613

REACTIONS (3)
  - Erythema [Recovered/Resolved]
  - Pruritus [Recovered/Resolved]
  - Urticaria [Recovered/Resolved]

NARRATIVE: CASE EVENT DATE: 20190613
